FAERS Safety Report 13881474 (Version 2)
Quarter: 2017Q3

REPORT INFORMATION
  Report Type: Report from Study
  Country: CA (occurrence: CA)
  Receive Date: 20170818
  Receipt Date: 20170829
  Transmission Date: 20171127
  Serious: Yes (Other)
  Sender: FDA-Public Use
  Company Number: CA-REGENERON PHARMACEUTICALS, INC.-2017-20371

PATIENT

DRUGS (1)
  1. EYLEA [Suspect]
     Active Substance: AFLIBERCEPT
     Indication: RETINAL VEIN OCCLUSION
     Dosage: 40 MG/ML, FREQUENCY UNSPECIFIED
     Dates: start: 20170731

REACTIONS (1)
  - Laser therapy [Unknown]

NARRATIVE: CASE EVENT DATE: 20170810
